FAERS Safety Report 9617486 (Version 3)
Quarter: 2013Q4

REPORT INFORMATION
  Report Type: Spontaneous
  Country: US (occurrence: None)
  Receive Date: 20131009
  Receipt Date: 20131119
  Transmission Date: 20140711
  Serious: Yes (Hospitalization, Other)
  Sender: FDA-Public Use
  Company Number: 2013US002553

PATIENT
  Age: 51 Year
  Sex: Female
  Weight: 98 kg

DRUGS (30)
  1. ICLUSIG [Suspect]
     Indication: ACUTE LYMPHOCYTIC LEUKAEMIA
     Route: 048
     Dates: start: 20130502, end: 20131104
  2. ICLUSIG [Suspect]
     Indication: CHROMOSOME ANALYSIS ABNORMAL
     Route: 048
     Dates: start: 20130502, end: 20131104
  3. BACTRIM (SULFAMETHOXAZOLE TRIMETHOPRIM) [Concomitant]
  4. TACROLIMUS (TACROLIMUS) [Concomitant]
  5. ACYCLOVIR (ACYLCLOVIR) [Concomitant]
  6. XANAX (ALPRAZOLAM) [Concomitant]
  7. PROTONIX (PANTOPRAZOLE SODIUM SESQUIHYDRATE) [Concomitant]
  8. WELLBUTRIN (BUPROPION HYDROCHLORIDE) [Concomitant]
  9. ZOLOFT (SERTRALINE HYDROCHLORIDE) [Concomitant]
  10. POTASSIUM CHLORIDE (POTASSIUM) [Concomitant]
  11. REMERON (MIRTAZAPINE) [Concomitant]
  12. DILAUDID (HYDROMORPHONE HYDROCHLORIDE) [Concomitant]
  13. PREDNISONE (PREDNISONE) [Concomitant]
  14. DIFLUCAN(FLUCONAZOLE) [Concomitant]
  15. LOPRESSOR (METOPROLOL TARTRATE) [Concomitant]
  16. IMODIUM (LOPERAMIDE HYDROCHLORIDE) (LOPERAMIDE) [Concomitant]
  17. NYSTOP (NYSTATIN) [Concomitant]
  18. COMPAZINE (PROCHLORPERAZINE MALEATE) [Concomitant]
  19. TYLENOL (PARACETAMOL) [Concomitant]
  20. VITAMIN C (VITAMIN C) [Concomitant]
  21. ASPIRIN (ASPIRIN) [Concomitant]
  22. DULCOLAX (BISACODYL) [Concomitant]
  23. LOMOTIL (ATROPINE SULFATE, DIPHENOXYLATE HYDROCHLORIDE) [Concomitant]
  24. LASIX (FUROSEMIDE) [Concomitant]
  25. BAG BALM (HYDROXYQUINOLINE SULFATE) [Concomitant]
  26. SYNTHROID (LEVOTHYROXINE SODIUM) [Concomitant]
  27. MILK OF MAGNESIA (MILK OF MAGNESIA) [Concomitant]
  28. FLEET (SODIUM PHOSPHATE DIBASIC, SODIUM PHOSPHATE MONOBASIC) [Concomitant]
  29. SENOKOT-S (DOCUSATE SODIUM, SENNA ALEXANDRINA) [Concomitant]
  30. ZINCATE (ZINC SULFATE) [Concomitant]

REACTIONS (8)
  - Atelectasis [None]
  - Pulmonary embolism [None]
  - Deep vein thrombosis [None]
  - Oedema peripheral [None]
  - Pleural effusion [None]
  - Klebsiella infection [None]
  - Pneumothorax [None]
  - Fall [None]
